FAERS Safety Report 9513106 (Version 1)
Quarter: 2013Q1

REPORT INFORMATION
  Report Type: Spontaneous
  Country: US (occurrence: None)
  Receive Date: 20130305
  Receipt Date: 20130305
  Transmission Date: 20140127
  Serious: Yes (Other)
  Sender: FDA-Public Use
  Company Number: 163-21880-12093365

PATIENT
  Age: 67 Year
  Sex: Female

DRUGS (4)
  1. REVLIMID (LENALIDOMIDE) (15 MILLIGRAM, CAPSULES) [Suspect]
     Indication: PLASMA CELL MYELOMA
     Dosage: 21 IN 21 D
     Route: 048
     Dates: start: 20080318
  2. CITRACAL + D [Concomitant]
  3. VITAMIN B12 [Concomitant]
  4. COUMADIN [Concomitant]

REACTIONS (4)
  - Seasonal allergy [None]
  - Ear congestion [None]
  - Middle ear effusion [None]
  - Erythema [None]
